FAERS Safety Report 7489220-X (Version None)
Quarter: 2011Q2

REPORT INFORMATION
  Report Type: 
  Country: None (occurrence: None)
  Receive Date: 20110518
  Receipt Date: 20110513
  Transmission Date: 20111010
  Serious: Yes (Hospitalization)
  Sender: FDA-Public Use
  Company Number: FR-PFIZER INC-2011065257

PATIENT
  Age: 72 Year
  Sex: Male

DRUGS (9)
  1. DRONEDARONE HCL [Suspect]
     Indication: ARRHYTHMIA
     Dosage: UNK
     Route: 048
     Dates: start: 20101130, end: 20101213
  2. CHONDROSULF [Concomitant]
  3. OROCAL VITAMIN D [Concomitant]
  4. INSPRA [Suspect]
     Dosage: UNK
     Route: 048
     Dates: end: 20101213
  5. SERECOR [Concomitant]
  6. FLECAINIDE ACETATE [Concomitant]
  7. PREVISCAN [Concomitant]
  8. ACETAMINOPHEN [Concomitant]
  9. DIFFU K [Concomitant]

REACTIONS (4)
  - RASH MACULO-PAPULAR [None]
  - DRUG RASH WITH EOSINOPHILIA AND SYSTEMIC SYMPTOMS [None]
  - EOSINOPHILIA [None]
  - PYREXIA [None]
